FAERS Safety Report 19069462 (Version 3)
Quarter: 2021Q2

REPORT INFORMATION
  Report Type: Spontaneous
  Country: CA (occurrence: CA)
  Receive Date: 20210329
  Receipt Date: 20210507
  Transmission Date: 20210717
  Serious: Yes (Life-Threatening)
  Sender: FDA-Public Use
  Company Number: CA-TEVA-2021-CA-1892008

PATIENT
  Age: 73 Year
  Sex: Male

DRUGS (1)
  1. TEVA?BUDESONIDE [Suspect]
     Active Substance: BUDESONIDE
     Indication: NASAL IRRIGATION
     Dosage: FORM STRENGTH: 0.5
     Dates: start: 20210218, end: 20210219

REACTIONS (5)
  - Nasal discomfort [Recovered/Resolved]
  - Near death experience [Unknown]
  - Hypersensitivity [Recovered/Resolved]
  - Therapeutic product ineffective [Unknown]
  - Feeling abnormal [Unknown]

NARRATIVE: CASE EVENT DATE: 202102
